FAERS Safety Report 6922507-5 (Version None)
Quarter: 2010Q3

REPORT INFORMATION
  Report Type: 
  Country: None (occurrence: None)
  Receive Date: 20100813
  Receipt Date: 20100802
  Transmission Date: 20110219
  Serious: Yes (Hospitalization)
  Sender: FDA-Public Use
  Company Number: DE-CEPHALON-2010004078

PATIENT
  Sex: Male
  Weight: 87 kg

DRUGS (4)
  1. TREANDA [Suspect]
     Indication: NON-HODGKIN'S LYMPHOMA
     Route: 042
     Dates: start: 20080313, end: 20080315
  2. TREANDA [Suspect]
     Route: 042
     Dates: start: 20080410, end: 20080411
  3. RITUXIMAB [Suspect]
     Indication: NON-HODGKIN'S LYMPHOMA
     Dates: start: 20080313, end: 20080315
  4. RITUXIMAB [Suspect]
     Dates: start: 20080410, end: 20080411

REACTIONS (1)
  - GASTRITIS [None]
